FAERS Safety Report 8221133-8 (Version None)
Quarter: 2012Q1

REPORT INFORMATION
  Report Type: 
  Country: None (occurrence: None)
  Receive Date: 20120320
  Receipt Date: 20120306
  Transmission Date: 20120608
  Serious: Yes (Hospitalization)
  Sender: FDA-Public Use
  Company Number: JP-MYLANLABS-2012S1005473

PATIENT
  Age: 62 Year
  Sex: Female

DRUGS (10)
  1. GRANISETRON [Concomitant]
     Indication: VOMITING
     Route: 042
     Dates: start: 20100914, end: 20101023
  2. PACLITAXEL [Suspect]
     Indication: LUNG NEOPLASM MALIGNANT
     Route: 042
     Dates: start: 20100914, end: 20101023
  3. RESTAMIN A KOWA [Concomitant]
     Indication: ALLERGY PROPHYLAXIS
     Route: 048
     Dates: start: 20100914, end: 20101023
  4. DEXAMETHASONE SODIUM PHOSPHATE [Concomitant]
     Indication: ALLERGY PROPHYLAXIS
     Dates: start: 20100914, end: 20101023
  5. CARBOPLATIN [Suspect]
     Indication: LUNG NEOPLASM MALIGNANT
     Route: 042
     Dates: start: 20100914, end: 20101023
  6. LOXOPROFEN SODIUM [Concomitant]
     Indication: CANCER PAIN
     Route: 048
     Dates: start: 20100913, end: 20100920
  7. LOXOPROFEN SODIUM [Concomitant]
     Dates: start: 20101027, end: 20101106
  8. ZANTAC [Concomitant]
     Indication: PROPHYLAXIS AGAINST GASTROINTESTINAL ULCER
     Route: 042
     Dates: start: 20100914, end: 20101023
  9. LOXOPROFEN SODIUM [Concomitant]
     Route: 048
     Dates: start: 20101006, end: 20101010
  10. ACETAMINOPHEN [Concomitant]
     Indication: CANCER PAIN
     Route: 048
     Dates: start: 20100922, end: 20101003

REACTIONS (1)
  - POSTERIOR REVERSIBLE ENCEPHALOPATHY SYNDROME [None]
